FAERS Safety Report 9331181 (Version 1)
Quarter: 2013Q2

REPORT INFORMATION
  Report Type: Spontaneous
  Country: ES (occurrence: ES)
  Receive Date: 20130605
  Receipt Date: 20130605
  Transmission Date: 20140414
  Serious: Yes (Death, Hospitalization)
  Sender: FDA-Public Use
  Company Number: PHHY2013ES056444

PATIENT
  Age: 87 Year
  Sex: Male

DRUGS (6)
  1. SINTROM [Suspect]
     Indication: ATRIAL FIBRILLATION
     Dosage: UNK UKN, UNK
     Route: 048
     Dates: end: 20130223
  2. IBUPROFEN SANDOZ [Suspect]
     Indication: GOUT
     Dosage: 600 MG, TID
     Route: 048
     Dates: start: 201302, end: 20130223
  3. AMOXICILLIN [Suspect]
     Indication: BRONCHIECTASIS
     Dosage: 3 G, DAILY
     Route: 048
     Dates: start: 20130201, end: 20130209
  4. AUGMENTINE [Suspect]
     Indication: BRONCHIECTASIS
     Dosage: 3 G, DAILY
     Route: 048
     Dates: start: 20130126, end: 20130130
  5. FUROSEMIDE [Concomitant]
     Indication: OEDEMA PERIPHERAL
     Dosage: 40 MG, DAILY
     Route: 048
     Dates: start: 200811, end: 20130209
  6. CO VALS FORTE [Concomitant]
     Indication: HYPERTENSION
     Dosage: 160 MG, DAILY
     Route: 048
     Dates: start: 201011, end: 20130209

REACTIONS (4)
  - Enterocolitis infectious [Fatal]
  - Diarrhoea [Fatal]
  - Lower gastrointestinal haemorrhage [Fatal]
  - Rectal haemorrhage [Fatal]
